FAERS Safety Report 5833076-5 (Version None)
Quarter: 2008Q3

REPORT INFORMATION
  Report Type: 
  Country: None (occurrence: None)
  Receive Date: 20080805
  Receipt Date: 20080728
  Transmission Date: 20090109
  Serious: Yes (Congenital Anomaly)
  Sender: FDA-Public Use
  Company Number: IE-RANBAXY-2008RR-16748

PATIENT

DRUGS (1)
  1. TOPIRAMAT RANBAXY 25MG TABLET [Suspect]
     Dosage: 50-750 MG/DAY
     Route: 015

REACTIONS (5)
  - ARTHROPATHY [None]
  - HIP DYSPLASIA [None]
  - PILONIDAL CYST CONGENITAL [None]
  - PLAGIOCEPHALY [None]
  - SYNDACTYLY [None]
